FAERS Safety Report 20063232 (Version 1)
Quarter: 2021Q4

REPORT INFORMATION
  Report Type: Spontaneous
  Country: TR (occurrence: TR)
  Receive Date: 20211112
  Receipt Date: 20211112
  Transmission Date: 20220303
  Serious: Yes (Other)
  Sender: FDA-Public Use
  Company Number: TR-TEVA-2021-TR-1978098

PATIENT
  Age: 29 Year
  Sex: Male

DRUGS (2)
  1. TAMOXIFEN [Suspect]
     Active Substance: TAMOXIFEN
     Dosage: 10 MILLIGRAM DAILY; TAMOXIFEN-TEVA 10 MG TABLET
     Route: 048
  2. PREGNYL [Suspect]
     Active Substance: CHORIOGONADOTROPIN ALFA
     Dosage: UNKNOWN
     Route: 065

REACTIONS (10)
  - Lymphadenopathy [Recovered/Resolved]
  - White blood cell count decreased [Unknown]
  - Blood parathyroid hormone decreased [Unknown]
  - Insulin-like growth factor abnormal [Unknown]
  - Vitamin D decreased [Unknown]
  - Erythema [Not Recovered/Not Resolved]
  - Rash [Not Recovered/Not Resolved]
  - Fatigue [Not Recovered/Not Resolved]
  - Weight decreased [Not Recovered/Not Resolved]
  - Hypersensitivity [Unknown]

NARRATIVE: CASE EVENT DATE: 20200101
